FAERS Safety Report 6111332-3 (Version None)
Quarter: 2009Q1

REPORT INFORMATION
  Report Type: 
  Country: None (occurrence: None)
  Receive Date: 20090310
  Receipt Date: 20090310
  Transmission Date: 20090719
  Serious: Yes (Hospitalization)
  Sender: FDA-Public Use
  Company Number: None

PATIENT
  Age: 36 Year
  Sex: Female
  Weight: 52.1637 kg

DRUGS (2)
  1. GEODON [Suspect]
     Indication: PARANOIA
     Dosage: 40MG QAM PO
     Route: 048
     Dates: start: 20081204, end: 20081220
  2. GEODON [Suspect]
     Dosage: 80MG QHS PO
     Route: 048
     Dates: start: 20081230, end: 20090129

REACTIONS (1)
  - CHOREA [None]
